FAERS Safety Report 10904176 (Version 2)
Quarter: 2015Q1

REPORT INFORMATION
  Report Type: Spontaneous
  Country: JP (occurrence: JP)
  Receive Date: 20150311
  Receipt Date: 20150326
  Transmission Date: 20150721
  Serious: Yes (Other)
  Sender: FDA-Public Use
  Company Number: JP-GALDERMA-JP15001074

PATIENT
  Age: 14 Year
  Sex: Female
  Weight: 48 kg

DRUGS (5)
  1. CLINDAMYCIN PHOSPHATE. [Concomitant]
     Active Substance: CLINDAMYCIN PHOSPHATE
     Indication: ACNE
     Dosage: CONTINUED
     Route: 061
     Dates: start: 20140929
  2. HIBON [Concomitant]
     Active Substance: RIBOFLAVIN
     Indication: ACNE
     Route: 048
     Dates: start: 20140929, end: 20141104
  3. DIFFERIN [Suspect]
     Active Substance: ADAPALENE
     Indication: ACNE
     Dosage: 0.1%
     Route: 061
     Dates: start: 20140929, end: 201412
  4. HIRUDOID [Concomitant]
     Active Substance: GLYCOSAMINOGLYCANS
     Indication: ACNE
     Dosage: CONTINUED
     Route: 061
     Dates: start: 20140929
  5. PYDOXAL [Concomitant]
     Active Substance: PYRIDOXAL
     Indication: ACNE
     Route: 048
     Dates: start: 20140929, end: 20141104

REACTIONS (3)
  - Paraesthesia [Recovered/Resolved]
  - Application site exfoliation [Recovering/Resolving]
  - Skin depigmentation [Not Recovered/Not Resolved]

NARRATIVE: CASE EVENT DATE: 20140929
